FAERS Safety Report 18937739 (Version 3)
Quarter: 2022Q1

REPORT INFORMATION
  Report Type: Report from Study
  Country: CA (occurrence: CA)
  Receive Date: 20210225
  Receipt Date: 20220224
  Transmission Date: 20220423
  Serious: Yes (Hospitalization, Other)
  Sender: FDA-Public Use
  Company Number: CA-GILEAD-2021-0518254

PATIENT
  Age: 29 Year
  Sex: Female
  Weight: 48 kg

DRUGS (21)
  1. AZTREONAM LYSINE [Suspect]
     Active Substance: AZTREONAM LYSINE
     Indication: Cystic fibrosis
     Dosage: 75 MG, TID
     Route: 055
     Dates: start: 202101, end: 202103
  2. OXYGEN [Concomitant]
     Active Substance: OXYGEN
  3. BISOPROLOL [Concomitant]
     Active Substance: BISOPROLOL
  4. CENTRUM FORTE [Concomitant]
  5. CHOLECALCIFEROL [Concomitant]
     Active Substance: CHOLECALCIFEROL
  6. COTAZYM ECS [AMYLASE;LIPASE;PROTEASE NOS] [Concomitant]
  7. ESCITALOPRAM [Concomitant]
     Active Substance: ESCITALOPRAM OXALATE
  8. FERROUS GLUCONATE [Concomitant]
     Active Substance: FERROUS GLUCONATE
  9. HUMALOG [Concomitant]
     Active Substance: INSULIN LISPRO
  10. HYDROMORPHONE [Concomitant]
     Active Substance: HYDROMORPHONE
  11. SODIUM CHLORIDE [Concomitant]
     Active Substance: SODIUM CHLORIDE
  12. OMEPRAZOLE [Concomitant]
     Active Substance: OMEPRAZOLE
  13. PULMOZYME [Concomitant]
     Active Substance: DORNASE ALFA
  14. RISEDRONATE SODIUM [Concomitant]
     Active Substance: RISEDRONATE SODIUM
  15. ALBUTEROL [Concomitant]
     Active Substance: ALBUTEROL
  16. SPIRIVA RESPIMAT [Concomitant]
     Active Substance: TIOTROPIUM BROMIDE
  17. SYMBICORT [Concomitant]
     Active Substance: BUDESONIDE\FORMOTEROL FUMARATE DIHYDRATE
  18. TOBI [Concomitant]
     Active Substance: TOBRAMYCIN
  19. TOBRAMYCIN [Concomitant]
     Active Substance: TOBRAMYCIN
  20. TRESIBA [Concomitant]
     Active Substance: INSULIN DEGLUDEC
  21. WARFARIN [Concomitant]
     Active Substance: WARFARIN

REACTIONS (2)
  - Cystic fibrosis [Unknown]
  - Lung disorder [Not Recovered/Not Resolved]

NARRATIVE: CASE EVENT DATE: 20210218
